FAERS Safety Report 10465105 (Version 1)
Quarter: 2014Q3

REPORT INFORMATION
  Report Type: Spontaneous
  Country: US (occurrence: US)
  Receive Date: 20140919
  Receipt Date: 20140919
  Transmission Date: 20150326
  Serious: Yes (Other)
  Sender: FDA-Public Use
  Company Number: US-MYLANLABS-2014M1004396

PATIENT

DRUGS (1)
  1. FENTANYL TRANSDERMAL SYSTEM [Suspect]
     Active Substance: FENTANYL
     Dosage: 50 ?G, QH, CHANGED Q48H
     Route: 062
     Dates: start: 2009

REACTIONS (5)
  - Drug dependence [Not Recovered/Not Resolved]
  - Incorrect drug administration duration [Not Recovered/Not Resolved]
  - Anxiety [Not Recovered/Not Resolved]
  - Application site pain [Not Recovered/Not Resolved]
  - Tremor [Not Recovered/Not Resolved]
